FAERS Safety Report 6109986-0 (Version None)
Quarter: 2009Q1

REPORT INFORMATION
  Report Type: 
  Country: None (occurrence: None)
  Receive Date: 20090310
  Receipt Date: 20081204
  Transmission Date: 20090719
  Serious: No
  Sender: FDA-Public Use
  Company Number: A0754576A

PATIENT
  Age: 61 Year
  Sex: Male

DRUGS (1)
  1. NICORETTE [Suspect]
     Dosage: 4GUM PER DAY
     Route: 002
     Dates: start: 20081028, end: 20081001

REACTIONS (11)
  - EATING DISORDER [None]
  - GINGIVAL BLISTER [None]
  - GINGIVAL PAIN [None]
  - HYPOAESTHESIA ORAL [None]
  - INTENTIONAL DRUG MISUSE [None]
  - ORAL PAIN [None]
  - PRODUCT QUALITY ISSUE [None]
  - SCAB [None]
  - SPEECH DISORDER [None]
  - SWOLLEN TONGUE [None]
  - THERMAL BURN [None]
